FAERS Safety Report 15191713 (Version 1)
Quarter: 2018Q3

REPORT INFORMATION
  Report Type: Spontaneous
  Country: None (occurrence: US)
  Receive Date: 20180724
  Receipt Date: 20180724
  Transmission Date: 20181010
  Serious: No
  Sender: FDA-Public Use
  Company Number: US-OSMOTICA_PHARMACEUTICAL_US_LLC-POI0573201700059

PATIENT
  Age: 56 Year
  Sex: Female

DRUGS (2)
  1. DIVIGEL [Suspect]
     Active Substance: ESTRADIOL
     Indication: OSTEOPOROSIS
     Dosage: APPLY NIGHTLY
     Route: 062
     Dates: start: 20170914, end: 20171005
  2. COMPOUNDED ACIDOPHILUS CREAM [Concomitant]
     Indication: VULVOVAGINAL MYCOTIC INFECTION
     Route: 061

REACTIONS (6)
  - Insomnia [Recovered/Resolved]
  - Blepharospasm [Recovering/Resolving]
  - Abdominal pain upper [Recovered/Resolved]
  - Nausea [Recovered/Resolved]
  - Headache [Recovered/Resolved]
  - Vaginal discharge [Not Recovered/Not Resolved]

NARRATIVE: CASE EVENT DATE: 20170921
